FAERS Safety Report 7086386-0 (Version None)
Quarter: 2010Q4

REPORT INFORMATION
  Report Type: 
  Country: None (occurrence: None)
  Receive Date: 20101105
  Receipt Date: 20101101
  Transmission Date: 20110411
  Serious: Yes (Death)
  Sender: FDA-Public Use
  Company Number: CA-JNJCH-2004050136

PATIENT
  Age: 20 Month
  Sex: Male
  Weight: 10 kg

DRUGS (1)
  1. DEXTROMETHORPHAN UNSPECIFIED [Suspect]
     Indication: COUGH
     Dosage: TEXT:1 ML (3 MG) TWICE
     Route: 048

REACTIONS (7)
  - BRAIN OEDEMA [None]
  - LYMPHADENITIS [None]
  - LYMPHADENOPATHY [None]
  - OVERDOSE [None]
  - PULMONARY HAEMORRHAGE [None]
  - RESPIRATORY FAILURE [None]
  - SPLENOMEGALY [None]
